FAERS Safety Report 8358047-9 (Version None)
Quarter: 2012Q2

REPORT INFORMATION
  Report Type: 
  Country: None (occurrence: None)
  Receive Date: 20120514
  Receipt Date: 20120503
  Transmission Date: 20120825
  Serious: Yes (Hospitalization, Disabling)
  Sender: FDA-Public Use
  Company Number: GR-BRISTOL-MYERS SQUIBB COMPANY-14818538

PATIENT
  Age: 70 Year
  Sex: Male
  Weight: 84 kg

DRUGS (10)
  1. VITAMIN B-12 [Concomitant]
     Indication: PROPHYLAXIS
     Dates: start: 20090917
  2. FOLIC ACID [Concomitant]
     Indication: PROPHYLAXIS
     Dates: start: 20090917, end: 20090927
  3. ANTIHISTAMINE NOS [Concomitant]
     Indication: PROPHYLAXIS
     Dates: start: 20090923, end: 20090923
  4. DEXAMETHASONE [Concomitant]
     Indication: PROPHYLAXIS
     Dates: start: 20090922, end: 20090924
  5. ACCURETIC [Concomitant]
     Indication: HYPERTENSION
     Dates: start: 19990101
  6. TAMSULOSIN HCL [Concomitant]
     Indication: BENIGN PROSTATIC HYPERPLASIA
     Dates: start: 20070101
  7. NEBIVOLOL HCL [Concomitant]
     Indication: HYPERTENSION
     Dates: start: 19990101
  8. CETUXIMAB [Suspect]
     Indication: NON-SMALL CELL LUNG CANCER
     Dosage: INTERRUPTED ON 30SEP09;ON DAY 1 CYCLE 1
     Route: 042
     Dates: start: 20090923, end: 20090923
  9. ALIMTA [Suspect]
     Indication: NON-SMALL CELL LUNG CANCER
     Dosage: VIAL: ON DAY1 EVERY 21DAYS
     Route: 042
     Dates: start: 20090923, end: 20090923
  10. CISPLATIN [Suspect]
     Indication: NON-SMALL CELL LUNG CANCER
     Dosage: ON DAY 1 EVERY 21 DAYS
     Route: 042
     Dates: start: 20090923, end: 20090923

REACTIONS (1)
  - CEREBRAL ISCHAEMIA [None]
